FAERS Safety Report 4836260-2 (Version None)
Quarter: 2005Q4

REPORT INFORMATION
  Report Type: 
  Country: None (occurrence: None)
  Receive Date: 20051121
  Receipt Date: 20051121
  Transmission Date: 20060501
  Serious: Yes (Life-Threatening, Hospitalization)
  Sender: FDA-Public Use
  Company Number: None

PATIENT
  Age: 35 Year
  Sex: Male
  Weight: 119 kg

DRUGS (1)
  1. ALLOPURINOL [Suspect]
     Indication: BLOOD URIC ACID INCREASED
     Dosage: 300 MG   ONCE DAILY   PO
     Route: 048
     Dates: start: 20051106, end: 20051112

REACTIONS (1)
  - STEVENS-JOHNSON SYNDROME [None]
